FAERS Safety Report 8609253-7 (Version None)
Quarter: 2012Q3

REPORT INFORMATION
  Report Type: 
  Country: None (occurrence: None)
  Receive Date: 20120821
  Receipt Date: 20120814
  Transmission Date: 20120928
  Serious: Yes (Hospitalization)
  Sender: FDA-Public Use
  Company Number: NZ-B.I. PHARMACEUTICALS,INC./RIDGEFIELD-2012-AU-01436AU

PATIENT
  Age: 75 Year
  Sex: Male

DRUGS (6)
  1. PRADAXA [Suspect]
     Indication: ATRIAL FIBRILLATION
     Dosage: 300 MG
     Route: 048
     Dates: end: 20120329
  2. PRADAXA [Suspect]
     Indication: ATRIAL FLUTTER
  3. ASPIRIN [Suspect]
     Indication: MYOCARDIAL ISCHAEMIA
     Dosage: 300 MG
     Route: 048
     Dates: end: 20120329
  4. ATORVASTATIN [Concomitant]
     Indication: HYPERLIPIDAEMIA
     Dosage: 40 MG
     Route: 048
  5. FUROSEMIDE [Concomitant]
     Indication: CONGESTIVE CARDIOMYOPATHY
     Dosage: 60 MG
     Route: 048
  6. AMIODARONE HCL [Concomitant]
     Indication: VENTRICULAR TACHYCARDIA
     Dosage: 100 MG
     Route: 048

REACTIONS (3)
  - MELAENA [None]
  - GASTRITIS EROSIVE [None]
  - RENAL FAILURE [None]
